FAERS Safety Report 21072376 (Version 1)
Quarter: 2022Q3

REPORT INFORMATION
  Report Type: Spontaneous
  Country: US (occurrence: US)
  Receive Date: 20220712
  Receipt Date: 20220712
  Transmission Date: 20221026
  Serious: No
  Sender: FDA-Public Use
  Company Number: US-FOUNDATIONCONSUMERHC-2022-US-011452

PATIENT
  Age: 24 Year
  Sex: Female
  Weight: 61.24 kg

DRUGS (1)
  1. TAKE ACTION [Suspect]
     Active Substance: LEVONORGESTREL
     Indication: Post coital contraception
     Dosage: PLAN B 1.5MG 14-APR-2022, TAKE ACTION 1.5MG 02-MAY-2022
     Route: 048
     Dates: start: 20220414, end: 20220502

REACTIONS (2)
  - Vaginal haemorrhage [Recovered/Resolved]
  - Menstruation delayed [Not Recovered/Not Resolved]

NARRATIVE: CASE EVENT DATE: 20220419
